FAERS Safety Report 24980207 (Version 1)
Quarter: 2025Q1

REPORT INFORMATION
  Report Type: Spontaneous
  Country: FR (occurrence: FR)
  Receive Date: 20250218
  Receipt Date: 20250218
  Transmission Date: 20250409
  Serious: Yes (Hospitalization)
  Sender: ACCORD
  Company Number: None

PATIENT
  Age: 47 Year
  Sex: Female
  Weight: 67 kg

DRUGS (12)
  1. CARBOPLATIN [Suspect]
     Active Substance: CARBOPLATIN
     Indication: Lung neoplasm malignant
     Dates: start: 20241114, end: 20241114
  2. PEMETREXED [Suspect]
     Active Substance: PEMETREXED
     Indication: Lung neoplasm malignant
     Dates: start: 20241014, end: 20241014
  3. XGEVA [Concomitant]
     Active Substance: DENOSUMAB
  4. OSIMERTINIB [Concomitant]
     Active Substance: OSIMERTINIB
  5. INNOHEP [Concomitant]
     Active Substance: TINZAPARIN SODIUM
  6. FOLIC ACID [Concomitant]
     Active Substance: FOLIC ACID
  7. CARBOPLATIN [Suspect]
     Active Substance: CARBOPLATIN
     Indication: Lung neoplasm malignant
     Dates: start: 20241014, end: 20241014
  8. CARBOPLATIN [Suspect]
     Active Substance: CARBOPLATIN
     Indication: Lung neoplasm malignant
     Dates: start: 20241212, end: 20241212
  9. CARBOPLATIN [Suspect]
     Active Substance: CARBOPLATIN
     Indication: Lung neoplasm malignant
     Dates: start: 20250114, end: 20250114
  10. PEMETREXED [Suspect]
     Active Substance: PEMETREXED
     Indication: Lung neoplasm malignant
     Dates: start: 20241114, end: 20241114
  11. PEMETREXED [Suspect]
     Active Substance: PEMETREXED
     Indication: Lung neoplasm malignant
     Dates: start: 20241212, end: 20241212
  12. PEMETREXED [Suspect]
     Active Substance: PEMETREXED
     Indication: Lung neoplasm malignant
     Dates: start: 20250114, end: 20250114

REACTIONS (1)
  - Hepatic cytolysis [Recovering/Resolving]

NARRATIVE: CASE EVENT DATE: 20241031
